FAERS Safety Report 21440911 (Version 1)
Quarter: 2022Q4

REPORT INFORMATION
  Report Type: Spontaneous
  Country: GB (occurrence: GB)
  Receive Date: 20221011
  Receipt Date: 20221011
  Transmission Date: 20230112
  Serious: Yes (Hospitalization)
  Sender: FDA-Public Use
  Company Number: GB-MHRA-MED-202210061029324080-HGLMJ

PATIENT

DRUGS (1)
  1. ACYCLOVIR [Suspect]
     Active Substance: ACYCLOVIR
     Indication: Genital herpes
     Dosage: 400 MG, TID (400MG THREE TIMES DAILY)
     Route: 065
     Dates: start: 20220929, end: 20221001

REACTIONS (2)
  - Pruritus [Recovering/Resolving]
  - Pharyngeal swelling [Recovered/Resolved]
